FAERS Safety Report 9176130 (Version 1)
Quarter: 2012Q4

REPORT INFORMATION
  Report Type: 
  Country: US (occurrence: US)
  Receive Date: 20120921
  Receipt Date: 20120921
  Transmission Date: 20130627
  Serious: Yes (Other)
  Sender: FDA-Public Use
  Company Number: US-RB-032100-11

PATIENT
  Age: 30 None
  Sex: Female

DRUGS (3)
  1. SUBUTEX [Suspect]
     Indication: DRUG DEPENDENCE
     Dosage: 12 mg daily
     Route: 060
     Dates: start: 20110902, end: 20110920
  2. SUBOXONE TABLET [Suspect]
     Indication: DRUG DEPENDENCE
     Dosage: 12 mg daily
     Route: 060
     Dates: start: 20100203, end: 20110801
  3. SUBOXONE TABLET [Suspect]
     Dates: start: 20110821

REACTIONS (2)
  - Exposure during pregnancy [Recovered/Resolved]
  - Abortion induced [Recovered/Resolved]
